FAERS Safety Report 8392580-9 (Version None)
Quarter: 2012Q2

REPORT INFORMATION
  Report Type: 
  Country: None (occurrence: None)
  Receive Date: 20120529
  Receipt Date: 20120521
  Transmission Date: 20120825
  Serious: Yes (Other)
  Sender: FDA-Public Use
  Company Number: US-CELGENEUS-163-20785-12051486

PATIENT
  Sex: Female

DRUGS (2)
  1. THALOMID [Suspect]
     Indication: MULTIPLE MYELOMA
     Dosage: 200 MILLIGRAM
     Route: 048
     Dates: start: 20100422
  2. FORTEO [Concomitant]
     Indication: BONE DISORDER
     Route: 065

REACTIONS (6)
  - CONTUSION [None]
  - TREATMENT NONCOMPLIANCE [None]
  - SKIN HAEMORRHAGE [None]
  - BONE DISORDER [None]
  - SOMNOLENCE [None]
  - VEIN DISORDER [None]
